FAERS Safety Report 17540982 (Version 2)
Quarter: 2020Q1

REPORT INFORMATION
  Report Type: Spontaneous
  Country: US (occurrence: US)
  Receive Date: 20200313
  Receipt Date: 20200331
  Transmission Date: 20200409
  Serious: Yes (Hospitalization, Other)
  Sender: FDA-Public Use
  Company Number: US-JNJFOC-20200303145

PATIENT
  Age: 32 Year
  Sex: Male
  Weight: 122.58 kg

DRUGS (3)
  1. HALOPERIDOL. [Concomitant]
     Active Substance: HALOPERIDOL
     Dosage: 1-2 TABLETS, DAILY AS NEEDED
     Route: 048
     Dates: start: 2018
  2. HALDOL DECANOATE [Suspect]
     Active Substance: HALOPERIDOL DECANOATE
     Indication: BEHAVIOUR DISORDER
     Dosage: 2 ML AMPULE
     Route: 065
     Dates: start: 202001
  3. HALDOL DECANOATE [Suspect]
     Active Substance: HALOPERIDOL DECANOATE
     Dosage: 1.5 ML AMPULE
     Route: 065
     Dates: start: 2016

REACTIONS (7)
  - Polydipsia [Unknown]
  - Immune system disorder [Unknown]
  - Adverse event [Unknown]
  - Therapeutic product effect decreased [Unknown]
  - Cryoglobulinaemia [Not Recovered/Not Resolved]
  - Amputation [Unknown]
  - Dialysis [Unknown]

NARRATIVE: CASE EVENT DATE: 2018
